FAERS Safety Report 5190033-2 (Version None)
Quarter: 2006Q4

REPORT INFORMATION
  Report Type: 
  Country: None (occurrence: None)
  Receive Date: 20061215
  Receipt Date: 20061204
  Transmission Date: 20070319
  Serious: Yes (Other)
  Sender: FDA-Public Use
  Company Number: 2006SP007860

PATIENT
  Sex: Female

DRUGS (2)
  1. TEMODAL [Suspect]
     Indication: BRAIN NEOPLASM
     Dosage: PO
     Route: 048
  2. TEMODAL [Suspect]
     Indication: NEOPLASM RECURRENCE
     Dosage: PO
     Route: 048

REACTIONS (4)
  - ALANINE AMINOTRANSFERASE INCREASED [None]
  - ASPARTATE AMINOTRANSFERASE INCREASED [None]
  - GAMMA-GLUTAMYLTRANSFERASE INCREASED [None]
  - HEPATIC FUNCTION ABNORMAL [None]
